FAERS Safety Report 8534445-5 (Version None)
Quarter: 2012Q2

REPORT INFORMATION
  Report Type: 
  Country: None (occurrence: None)
  Receive Date: 20120412
  Receipt Date: 20090421
  Transmission Date: 20120825
  Serious: Yes (Other)
  Sender: FDA-Public Use
  Company Number: PHEH2009US03972

PATIENT
  Sex: Male

DRUGS (2)
  1. CLOZARIL [Suspect]
     Indication: BIPOLAR DISORDER
     Dosage: 600 MG, QD, ORAL
     Route: 048
     Dates: end: 20090401
  2. CLOZARIL [Suspect]
     Indication: HALLUCINATION
     Dosage: 600 MG, QD, ORAL
     Route: 048
     Dates: end: 20090401

REACTIONS (1)
  - CONVULSION [None]
